FAERS Safety Report 15992540 (Version 2)
Quarter: 2019Q1

REPORT INFORMATION
  Report Type: Report from Study
  Country: US (occurrence: US)
  Receive Date: 20190221
  Receipt Date: 20190312
  Transmission Date: 20190418
  Serious: Yes (Life-Threatening, Hospitalization, Disabling, Other)
  Sender: FDA-Public Use
  Company Number: US-WHANIN PHARM. CO., LTD.-2019M1016867

PATIENT
  Sex: Male
  Weight: 72.6 kg

DRUGS (2)
  1. CLOZAPINE. [Suspect]
     Active Substance: CLOZAPINE
     Indication: SCHIZOPHRENIA
     Dosage: UNK
  2. CLOZAPINE. [Suspect]
     Active Substance: CLOZAPINE
     Dosage: UNK

REACTIONS (2)
  - Seizure [Unknown]
  - Encephalopathy [Unknown]
